FAERS Safety Report 20167851 (Version 1)
Quarter: 2021Q4

REPORT INFORMATION
  Report Type: Spontaneous
  Country: JP (occurrence: JP)
  Receive Date: 20211210
  Receipt Date: 20211210
  Transmission Date: 20220303
  Serious: Yes (Other)
  Sender: FDA-Public Use
  Company Number: JP-SUN PHARMACEUTICAL INDUSTRIES LTD-2021RR-319005

PATIENT
  Age: 83 Year
  Sex: Male
  Weight: 57.6 kg

DRUGS (6)
  1. ACYCLOVIR [Suspect]
     Active Substance: ACYCLOVIR
     Indication: Herpes zoster
     Dosage: UNK
     Route: 065
  2. ACETAMINOPHEN [Suspect]
     Active Substance: ACETAMINOPHEN
     Indication: Nasopharyngitis
     Dosage: UNK
     Route: 065
  3. VALACYCLOVIR [Suspect]
     Active Substance: VALACYCLOVIR HYDROCHLORIDE
     Indication: Herpes zoster
     Dosage: 3000 MILLIGRAM, DAILY
     Route: 065
  4. LASCUFLOXACIN [Concomitant]
     Indication: Nasopharyngitis
     Dosage: UNK
     Route: 065
  5. EPRAZINONE [Concomitant]
     Active Substance: EPRAZINONE
     Indication: Nasopharyngitis
     Dosage: UNK
     Route: 065
  6. TEPRENONE [Concomitant]
     Active Substance: TEPRENONE
     Indication: Nasopharyngitis
     Dosage: UNK
     Route: 065

REACTIONS (2)
  - Toxic encephalopathy [Unknown]
  - Herpes zoster [Unknown]
